FAERS Safety Report 13984991 (Version 1)
Quarter: 2017Q3

REPORT INFORMATION
  Report Type: Spontaneous
  Country: CA (occurrence: CA)
  Receive Date: 20170919
  Receipt Date: 20170919
  Transmission Date: 20171128
  Serious: Yes (Other)
  Sender: FDA-Public Use
  Company Number: CA-ACTELION-A-NJ2017-159499

PATIENT
  Age: 61 Year
  Sex: Female

DRUGS (16)
  1. CLOPIDOGREL [Concomitant]
     Active Substance: CLOPIDOGREL BISULFATE
  2. ATIVAN [Concomitant]
     Active Substance: LORAZEPAM
  3. DOXEPIN [Concomitant]
     Active Substance: DOXEPIN
  4. STOOL SOFTENER (DOCUSATE) [Concomitant]
     Active Substance: DOCUSATE
  5. VITAMIN D [Concomitant]
     Active Substance: CHOLECALCIFEROL
  6. PANTOPRAZOLE [Concomitant]
     Active Substance: PANTOPRAZOLE
  7. SPIROTON [Concomitant]
  8. COLCHICINE. [Concomitant]
     Active Substance: COLCHICINE
  9. POTASSIUM [Concomitant]
     Active Substance: POTASSIUM
  10. OPSUMIT [Suspect]
     Active Substance: MACITENTAN
     Indication: PULMONARY HYPERTENSION
     Dosage: 10 MG, QD
     Route: 048
  11. FUROSEMIDE. [Concomitant]
     Active Substance: FUROSEMIDE
  12. NEXIUM [Concomitant]
     Active Substance: ESOMEPRAZOLE MAGNESIUM
  13. SULFASALAZINE. [Concomitant]
     Active Substance: SULFASALAZINE
  14. ASA [Concomitant]
     Active Substance: ASPIRIN
  15. BISOPROLOL [Concomitant]
     Active Substance: BISOPROLOL
  16. ROSUVASTATIN. [Concomitant]
     Active Substance: ROSUVASTATIN

REACTIONS (6)
  - Transfusion [Unknown]
  - Chest pain [Unknown]
  - Chest discomfort [Unknown]
  - Pancreatic carcinoma [Unknown]
  - Neoplasm [Unknown]
  - Palliative care [Unknown]
